FAERS Safety Report 8654309 (Version 3)
Quarter: 2012Q4

REPORT INFORMATION
  Report Type: 
  Country: DK (occurrence: DK)
  Receive Date: 20120709
  Receipt Date: 20121022
  Transmission Date: 20130627
  Serious: Yes (Hospitalization)
  Sender: FDA-Public Use
  Company Number: DK-PFIZER INC-2012145760

PATIENT
  Age: 36 Year
  Sex: Female

DRUGS (4)
  1. GENOTROPIN [Suspect]
     Indication: SUPPLEMENTATION THERAPY
     Dosage: 1 mg, 1x/day
     Dates: start: 2001, end: 201203
  2. ELTROXIN [Suspect]
     Indication: SUPPLEMENTATION THERAPY
     Dosage: 200 ug, 1x/day
     Route: 048
     Dates: start: 2001
  3. MENOPUR [Concomitant]
     Indication: OVULATION DISORDER
     Dosage: UNK
  4. OVITRELLE [Concomitant]
     Indication: OVULATION DISORDER
     Dosage: UNK

REACTIONS (1)
  - Foetal death [Not Recovered/Not Resolved]
